FAERS Safety Report 8861308 (Version 4)
Quarter: 2013Q3

REPORT INFORMATION
  Report Type: Spontaneous
  Country: US (occurrence: US)
  Receive Date: 20121026
  Receipt Date: 20130830
  Transmission Date: 20140515
  Serious: No
  Sender: FDA-Public Use
  Company Number: US-PFIZER INC-2012265879

PATIENT
  Age: 59 Year
  Sex: Female

DRUGS (7)
  1. XALKORI [Suspect]
     Indication: NON-SMALL CELL LUNG CANCER
     Dosage: UNK, 1X/DAY (1 TAB QOD ALTERNATING WITH 2 TAB QOD)
     Route: 048
     Dates: start: 20111121
  2. XALKORI [Suspect]
     Indication: LUNG NEOPLASM MALIGNANT
     Dosage: 250 MG, 1X/DAY
     Route: 048
     Dates: start: 20111123
  3. DOXEPIN [Concomitant]
     Dosage: 100 MG, HS (AT BED TIME)
  4. NEXIUM [Concomitant]
     Dosage: 40 MG, 2X/DAY
  5. NIASPAN [Concomitant]
     Dosage: 500 MG, 1X/DAY
  6. SIMVASTATIN [Concomitant]
     Dosage: 20 MG, 1X/DAY
  7. DIAZEPAM [Concomitant]
     Dosage: 10 MG, 3X/DAY AS NEEDED (TID PRN)

REACTIONS (6)
  - Insomnia [Not Recovered/Not Resolved]
  - Disturbance in attention [Not Recovered/Not Resolved]
  - Burning sensation [Recovering/Resolving]
  - Breast mass [Unknown]
  - Local swelling [Unknown]
  - Sinusitis [Unknown]
